FAERS Safety Report 20323001 (Version 1)
Quarter: 2022Q1

REPORT INFORMATION
  Report Type: Spontaneous
  Country: US (occurrence: US)
  Receive Date: 20220111
  Receipt Date: 20220111
  Transmission Date: 20220423
  Serious: No
  Sender: FDA-Public Use
  Company Number: US-009507513-2112USA007843

PATIENT
  Age: 69 Year
  Sex: Female

DRUGS (2)
  1. KEYTRUDA [Suspect]
     Active Substance: PEMBROLIZUMAB
     Indication: Colorectal cancer metastatic
     Dosage: UNK
     Route: 042
     Dates: start: 20211216
  2. ATENOLOL [Concomitant]
     Active Substance: ATENOLOL

REACTIONS (6)
  - Tachycardia [Recovered/Resolved]
  - Dyspnoea exertional [Not Recovered/Not Resolved]
  - Oxygen saturation abnormal [Unknown]
  - Tachycardia [Unknown]
  - Blood pressure abnormal [Unknown]
  - Asthenia [Not Recovered/Not Resolved]

NARRATIVE: CASE EVENT DATE: 20211201
